FAERS Safety Report 4984501-3 (Version None)
Quarter: 2006Q2

REPORT INFORMATION
  Report Type: 
  Country: None (occurrence: None)
  Receive Date: 20060420
  Receipt Date: 20060407
  Transmission Date: 20061013
  Serious: Yes (Other)
  Sender: FDA-Public Use
  Company Number: 2006RL000126

PATIENT
  Age: 68 Year
  Sex: Female

DRUGS (3)
  1. PROPAFENONE HCL [Suspect]
     Indication: PALPITATIONS
     Dosage: 75 MG; PO
     Route: 048
     Dates: start: 20060227, end: 20060309
  2. WARFARIN SODIUM [Concomitant]
  3. OMEPRAZOLE [Concomitant]

REACTIONS (1)
  - LIVER FUNCTION TEST ABNORMAL [None]
